FAERS Safety Report 6370069-6 (Version None)
Quarter: 2009Q3

REPORT INFORMATION
  Report Type: 
  Country: None (occurrence: None)
  Receive Date: 20090921
  Receipt Date: 20090921
  Transmission Date: 20100115
  Serious: Yes (Other)
  Sender: FDA-Public Use
  Company Number: None

PATIENT
  Sex: Male
  Weight: 99.3377 kg

DRUGS (1)
  1. RAPAFLO [Suspect]
     Dosage: 8 MG 1 CAP  (APPROX 15 TO 16 DAY

REACTIONS (3)
  - CONDITION AGGRAVATED [None]
  - PAIN [None]
  - URINARY TRACT DISORDER [None]
